FAERS Safety Report 6430264-4 (Version None)
Quarter: 2009Q4

REPORT INFORMATION
  Report Type: 
  Country: None (occurrence: None)
  Receive Date: 20091106
  Receipt Date: 20091104
  Transmission Date: 20100525
  Serious: Yes (Hospitalization, Disabling)
  Sender: FDA-Public Use
  Company Number: US-BAYER-200915544BCC

PATIENT
  Age: 52 Year
  Sex: Male
  Weight: 181 kg

DRUGS (14)
  1. ALEVE [Suspect]
     Indication: BACK PAIN
     Dosage: TOTAL DAILY DOSE: 440 MG  UNIT DOSE: 220 MG
     Route: 048
     Dates: start: 20090410, end: 20090410
  2. ALEVE [Suspect]
     Dosage: TOTAL DAILY DOSE: 440 MG  UNIT DOSE: 220 MG
     Route: 048
     Dates: start: 20090408, end: 20090408
  3. LISINOPRIL [Concomitant]
  4. LEVOTHYROXINE SODIUM [Concomitant]
  5. ONE A DAY MEN'S HEALTH [Concomitant]
  6. CEPHALEXIN [Concomitant]
     Route: 065
  7. DARVOCET [Concomitant]
     Route: 065
  8. PROPOXYPHEN [Concomitant]
     Route: 065
     Dates: start: 20090410
  9. CARVEDILOL [Concomitant]
     Route: 065
     Dates: start: 20090410
  10. WARFARIN SODIUM [Concomitant]
     Route: 065
     Dates: start: 20090410
  11. PLAVIX [Concomitant]
     Route: 065
     Dates: start: 20090410
  12. AMIODARONE [Concomitant]
     Route: 065
  13. PRAVASTATIN [Concomitant]
     Route: 065
     Dates: start: 20090410
  14. OMEPRAZOLE [Concomitant]
     Route: 065
     Dates: start: 20090410

REACTIONS (12)
  - BLOOD GLUCOSE INCREASED [None]
  - CARDIAC FAILURE [None]
  - DYSPNOEA [None]
  - ERYTHEMA [None]
  - HEART RATE DECREASED [None]
  - HYPERSENSITIVITY [None]
  - IMPLANTABLE DEFIBRILLATOR INSERTION [None]
  - PALPITATIONS [None]
  - PRURITUS [None]
  - SPEECH DISORDER [None]
  - SWELLING [None]
  - VISION BLURRED [None]
